FAERS Safety Report 18214688 (Version 2)
Quarter: 2020Q3

REPORT INFORMATION
  Report Type: Report from Study
  Country: US (occurrence: US)
  Receive Date: 20200831
  Receipt Date: 20200916
  Transmission Date: 20201103
  Serious: Yes (Other)
  Sender: FDA-Public Use
  Company Number: US-JNJFOC-20200834364

PATIENT
  Age: 75 Year
  Sex: Female
  Weight: 113.5 kg

DRUGS (6)
  1. SPRAVATO [Suspect]
     Active Substance: ESKETAMINE
     Dosage: 28 MG 2 TOTAL DOSES
     Dates: start: 20200417, end: 20200522
  2. SPRAVATO [Suspect]
     Active Substance: ESKETAMINE
     Indication: DEPRESSION
     Dosage: 28 MG; 1 TOTAL DOSE
     Dates: start: 20200122, end: 20200122
  3. SPRAVATO [Suspect]
     Active Substance: ESKETAMINE
     Dosage: 56 MG; TOTAL 6 DOSES
     Dates: start: 20200529, end: 20200805
  4. SPRAVATO [Suspect]
     Active Substance: ESKETAMINE
     Dosage: 56 MG; 3 TOTAL DOSES
     Dates: start: 20200305, end: 20200313
  5. SPRAVATO [Suspect]
     Active Substance: ESKETAMINE
     Dosage: 28MG, 1 TOTAL DOSE
     Dates: start: 20200331, end: 20200331
  6. SPRAVATO [Suspect]
     Active Substance: ESKETAMINE
     Dosage: 56MG, 1 TOTAL DOSES
     Dates: start: 20200403, end: 20200403

REACTIONS (5)
  - Limb discomfort [Unknown]
  - Muscular weakness [Unknown]
  - Dyspnoea [Unknown]
  - Chest pain [Unknown]
  - Sedation [Recovered/Resolved]

NARRATIVE: CASE EVENT DATE: 20200819
